FAERS Safety Report 17125783 (Version 2)
Quarter: 2019Q4

REPORT INFORMATION
  Report Type: Report from Study
  Country: IN (occurrence: IN)
  Receive Date: 20191208
  Receipt Date: 20191219
  Transmission Date: 20200122
  Serious: Yes (Other)
  Sender: FDA-Public Use
  Company Number: PHHY2018IN198215

PATIENT
  Age: 60 Year
  Sex: Female
  Weight: 63 kg

DRUGS (4)
  1. ZORYL-M [Concomitant]
     Indication: PRODUCT USED FOR UNKNOWN INDICATION
     Dosage: 1 DF ((GLIMEPIRIDE 0.5MG, METFORMIN HYDROCHLORIDE 500MG), BID
     Route: 048
  2. LIPICURE [Concomitant]
     Indication: PRODUCT USED FOR UNKNOWN INDICATION
     Dosage: 10 MG, QD
     Route: 048
  3. GALVUS MET [Suspect]
     Active Substance: METFORMIN HYDROCHLORIDE\VILDAGLIPTIN
     Indication: PRODUCT USED FOR UNKNOWN INDICATION
     Dosage: 1 DF (METFORMIN 500MG, VILDAGLIPTIN 50MG), BID
     Route: 048
  4. ELTROXIN [Concomitant]
     Active Substance: LEVOTHYROXINE
     Indication: PRODUCT USED FOR UNKNOWN INDICATION
     Dosage: 25 OT, QD
     Route: 048

REACTIONS (23)
  - Hypothyroidism [Unknown]
  - Glycosylated haemoglobin abnormal [Unknown]
  - Hyperglycaemia [Unknown]
  - Headache [Unknown]
  - Hypoglycaemia [Recovered/Resolved]
  - Hyperglycaemia [Unknown]
  - Gastrooesophageal reflux disease [Unknown]
  - Nasal congestion [Unknown]
  - Pain in extremity [Unknown]
  - Hyperglycaemia [Recovered/Resolved]
  - Cough [Unknown]
  - Food allergy [Recovered/Resolved]
  - Hyperglycaemia [Unknown]
  - Hypoglycaemia [Unknown]
  - Flatulence [Recovered/Resolved]
  - Bronchitis [Unknown]
  - Hyperglycaemia [Unknown]
  - Abdominal pain upper [Recovered/Resolved]
  - Hyperglycaemia [Unknown]
  - Limb discomfort [Unknown]
  - Glycosylated haemoglobin increased [Unknown]
  - Abdominal distension [Recovered/Resolved]
  - Nasopharyngitis [Unknown]

NARRATIVE: CASE EVENT DATE: 20180226
